FAERS Safety Report 11192120 (Version 1)
Quarter: 2015Q2

REPORT INFORMATION
  Report Type: Spontaneous
  Country: US (occurrence: US)
  Receive Date: 20150616
  Receipt Date: 20150616
  Transmission Date: 20150821
  Serious: No
  Sender: FDA-Public Use
  Company Number: US-BIOGENIDEC-2015BI081136

PATIENT
  Sex: Female

DRUGS (1)
  1. TYSABRI [Suspect]
     Active Substance: NATALIZUMAB
     Indication: MULTIPLE SCLEROSIS
     Route: 042
     Dates: start: 20150225

REACTIONS (7)
  - Influenza like illness [Recovered/Resolved]
  - Headache [Recovered/Resolved with Sequelae]
  - Abdominal discomfort [Recovered/Resolved]
  - Fluid intake reduced [Recovered/Resolved]
  - Hot flush [Recovered/Resolved]
  - Asthenia [Recovered/Resolved with Sequelae]
  - Tremor [Not Recovered/Not Resolved]
